FAERS Safety Report 12672018 (Version 1)
Quarter: 2016Q3

REPORT INFORMATION
  Report Type: Spontaneous
  Country: US (occurrence: US)
  Receive Date: 20160822
  Receipt Date: 20160822
  Transmission Date: 20161109
  Serious: No
  Sender: FDA-Public Use
  Company Number: US-PFIZER INC-2016390628

PATIENT

DRUGS (1)
  1. SUNITINIB MALATE. [Suspect]
     Active Substance: SUNITINIB MALATE
     Indication: THYROID CANCER
     Dosage: UNK

REACTIONS (4)
  - Disease progression [Unknown]
  - Thyroid cancer [Unknown]
  - Tumour haemorrhage [Unknown]
  - Product use issue [Unknown]
